FAERS Safety Report 8280416-6 (Version None)
Quarter: 2012Q2

REPORT INFORMATION
  Report Type: 
  Country: None (occurrence: None)
  Receive Date: 20120412
  Receipt Date: 20110627
  Transmission Date: 20120825
  Serious: Yes (Other)
  Sender: FDA-Public Use
  Company Number: US-ASTRAZENECA-2011SE38794

PATIENT
  Age: 47 Year
  Sex: Male

DRUGS (2)
  1. NEXIUM [Suspect]
     Route: 048
  2. PRILOSEC [Suspect]
     Route: 048

REACTIONS (8)
  - APHAGIA [None]
  - THROAT IRRITATION [None]
  - DYSPEPSIA [None]
  - GASTRIC ULCER [None]
  - DRUG INEFFECTIVE [None]
  - WRONG DRUG ADMINISTERED [None]
  - GASTRIC HAEMORRHAGE [None]
  - DRUG DOSE OMISSION [None]
